FAERS Safety Report 19390051 (Version 1)
Quarter: 2021Q2

REPORT INFORMATION
  Report Type: Spontaneous
  Country: TR (occurrence: TR)
  Receive Date: 20210608
  Receipt Date: 20210608
  Transmission Date: 20210717
  Serious: Yes (Death, Other)
  Sender: FDA-Public Use
  Company Number: TR-TEVA-2021-TR-1920371

PATIENT
  Sex: Female

DRUGS (1)
  1. XELTABIN [Suspect]
     Active Substance: CAPECITABINE
     Dosage: UNKNOWN FORM STRENGTH

REACTIONS (2)
  - Loss of consciousness [Fatal]
  - Nephropathy toxic [Fatal]
